FAERS Safety Report 4353727-4 (Version None)
Quarter: 2004Q2

REPORT INFORMATION
  Report Type: 
  Country: None (occurrence: None)
  Receive Date: 20040430
  Receipt Date: 20040413
  Transmission Date: 20050107
  Serious: Yes (Other)
  Sender: FDA-Public Use
  Company Number: 205789

PATIENT
  Age: 40 Year
  Sex: Female

DRUGS (10)
  1. XOLAIR [Suspect]
     Indication: ASTHMA
     Dosage: 300 MG, Q2W, SUBCUTANEOUS
     Route: 058
     Dates: start: 20010808, end: 20020130
  2. XOLAIR [Suspect]
     Indication: ASTHMA
     Dosage: 300 MG, Q2W, SUBCUTANEOUS
     Route: 058
     Dates: start: 20020208, end: 20020703
  3. FLUTICASONE PROPIONATE [Concomitant]
  4. SALMETEROL XINAFOATE (SALMETEROL XINAFOATE) [Concomitant]
  5. ALBUTEROL SULFATE (ALBUTEROL SULFATE, ALBUTEROL) [Concomitant]
  6. ADVAIR DISKUS [Concomitant]
  7. PREDNISONE [Concomitant]
  8. NYQUIL (PSEUDOEPHEDRINE HYDROCHLORIDE, DOXYLAMINE SUCCINATE, DEXTROMET [Concomitant]
  9. THERAFLU FLU, COLD + COUGH NON-DROWSY (ACETAMINOPHEN, DEXTROMETHORPHAN [Concomitant]
  10. CETIRIZINE HCL [Concomitant]

REACTIONS (1)
  - BREAST CANCER IN SITU [None]
